FAERS Safety Report 5766211-8 (Version None)
Quarter: 2008Q2

REPORT INFORMATION
  Report Type: 
  Country: None (occurrence: None)
  Receive Date: 20080606
  Receipt Date: 20080522
  Transmission Date: 20081010
  Serious: Yes (Hospitalization)
  Sender: FDA-Public Use
  Company Number: 2008AL005848

PATIENT
  Age: 63 Year
  Sex: Male
  Weight: 72.5755 kg

DRUGS (5)
  1. DIGOXIN [Suspect]
     Indication: CARDIAC FAILURE CONGESTIVE
     Dosage: 0.25MG, QD, PO YEARS
     Route: 048
  2. ENALAPRIL MALEATE [Concomitant]
  3. GEMFIBROZIL [Concomitant]
  4. WARFARIN SODIUM [Concomitant]
  5. ZOCOR [Concomitant]

REACTIONS (7)
  - ANXIETY [None]
  - ATRIOVENTRICULAR BLOCK [None]
  - BRADYCARDIA [None]
  - CARDIAC ARREST [None]
  - LOSS OF CONSCIOUSNESS [None]
  - OVERDOSE [None]
  - SYNCOPE [None]
